FAERS Safety Report 13958786 (Version 1)
Quarter: 2017Q3

REPORT INFORMATION
  Report Type: Spontaneous
  Country: US (occurrence: US)
  Receive Date: 20170911
  Receipt Date: 20170911
  Transmission Date: 20171128
  Serious: Yes (Other)
  Sender: FDA-Public Use
  Company Number: None

PATIENT
  Age: 84 Year
  Sex: Male
  Weight: 99 kg

DRUGS (15)
  1. AZELASTINE HCL [Suspect]
     Active Substance: AZELASTINE HYDROCHLORIDE
     Indication: RHINORRHOEA
     Dosage: ?          OTHER STRENGTH:(205.5 MCG PER SPR;?
     Route: 055
     Dates: start: 20170727, end: 20170801
  2. SCHIFF SUPER CALCIUM [Concomitant]
  3. VITAMIN D [Concomitant]
     Active Substance: CHOLECALCIFEROL
  4. PRAVASTATIN. [Concomitant]
     Active Substance: PRAVASTATIN
  5. LISINOPRIL. [Concomitant]
     Active Substance: LISINOPRIL
  6. ISOSORBIDE MONONITRATE. [Concomitant]
     Active Substance: ISOSORBIDE MONONITRATE
  7. COQ10 [Concomitant]
     Active Substance: UBIDECARENONE
  8. MELOXICAM. [Concomitant]
     Active Substance: MELOXICAM
  9. OMEPRAZOLE. [Concomitant]
     Active Substance: OMEPRAZOLE
  10. METOPROLOL ER SUCCINATE [Concomitant]
     Active Substance: METOPROLOL SUCCINATE
  11. BAYER LOW DOSE [Concomitant]
     Active Substance: ASPIRIN
  12. DOXAZOSIN [Concomitant]
     Active Substance: DOXAZOSIN\DOXAZOSIN MESYLATE
  13. AMLODIPINE BESYLATE. [Concomitant]
     Active Substance: AMLODIPINE BESYLATE
  14. CENTRUM SILVER [Concomitant]
     Active Substance: MINERALS\VITAMINS
  15. VITRON C IRON [Concomitant]

REACTIONS (8)
  - Product use complaint [None]
  - Fatigue [None]
  - Pharyngeal oedema [None]
  - Ear disorder [None]
  - Accidental exposure to product [None]
  - Dysgeusia [None]
  - Oropharyngeal pain [None]
  - Asthenia [None]

NARRATIVE: CASE EVENT DATE: 20170801
